FAERS Safety Report 12164806 (Version 1)
Quarter: 2016Q1

REPORT INFORMATION
  Report Type: Report from Study
  Country: US (occurrence: US)
  Receive Date: 20160309
  Receipt Date: 20160309
  Transmission Date: 20160526
  Serious: No
  Sender: FDA-Public Use
  Company Number: US-ABBVIE-15P-163-1446976-00

PATIENT
  Age: 52 Year
  Sex: Female

DRUGS (6)
  1. LUPRON DEPOT [Suspect]
     Active Substance: LEUPROLIDE ACETATE
     Indication: MENSTRUAL DISORDER
     Dosage: ONCE
     Route: 065
     Dates: start: 201407
  2. LUPRON DEPOT [Suspect]
     Active Substance: LEUPROLIDE ACETATE
     Route: 065
     Dates: start: 20150814
  3. LUPRON DEPOT [Suspect]
     Active Substance: LEUPROLIDE ACETATE
     Dosage: ONCE
     Route: 065
     Dates: start: 201412
  4. LITHIUM. [Concomitant]
     Active Substance: LITHIUM
     Indication: ANXIETY
  5. PROZAC [Concomitant]
     Active Substance: FLUOXETINE HYDROCHLORIDE
     Indication: ANXIETY
     Route: 048
     Dates: start: 201401
  6. LITHIUM. [Concomitant]
     Active Substance: LITHIUM
     Indication: BIPOLAR DISORDER
     Route: 048
     Dates: start: 201401

REACTIONS (10)
  - Vomiting [Unknown]
  - Nausea [Unknown]
  - Hot flush [Not Recovered/Not Resolved]
  - Off label use [Unknown]
  - Loss of consciousness [Unknown]
  - Loss of consciousness [Unknown]
  - Injection site pain [Recovered/Resolved]
  - Injection site pain [Not Recovered/Not Resolved]
  - Dysmenorrhoea [Not Recovered/Not Resolved]
  - Injection site pain [Recovered/Resolved]

NARRATIVE: CASE EVENT DATE: 201407
